FAERS Safety Report 5164388-9 (Version None)
Quarter: 2006Q4

REPORT INFORMATION
  Report Type: 
  Country: None (occurrence: None)
  Receive Date: 20061129
  Receipt Date: 20061129
  Transmission Date: 20070319
  Serious: Yes (Disabling)
  Sender: FDA-Public Use
  Company Number: None

PATIENT
  Age: 60 Year
  Sex: Male
  Weight: 212 kg

DRUGS (1)
  1. MINOCYCLINE HCL [Suspect]
     Dosage: 100 MG Q12HRS PO
     Route: 048
     Dates: start: 19961101, end: 20061122

REACTIONS (4)
  - PIGMENTATION DISORDER [None]
  - RASH [None]
  - ROSACEA [None]
  - SKIN DISCOLOURATION [None]
